FAERS Safety Report 4285384-X (Version None)
Quarter: 2004Q1

REPORT INFORMATION
  Report Type: 
  Country: None (occurrence: None)
  Receive Date: 20040202
  Receipt Date: 20040121
  Transmission Date: 20041129
  Serious: Yes (Hospitalization, Other)
  Sender: FDA-Public Use
  Company Number: 2004003865

PATIENT
  Age: 76 Year
  Sex: Female

DRUGS (4)
  1. ZYRTEC [Suspect]
     Indication: ILL-DEFINED DISORDER
     Dosage: ORAL
     Route: 048
     Dates: start: 20020915, end: 20031119
  2. INDAPAMIDE [Suspect]
     Indication: ILL-DEFINED DISORDER
     Dosage: ORAL
     Route: 048
     Dates: start: 20021015, end: 20031113
  3. IRBESARTAN (IRBESARTAN) [Suspect]
     Indication: ILL-DEFINED DISORDER
     Dosage: ORAL
     Route: 048
     Dates: end: 20031113
  4. DILTIAZEM HYRDOCHLORIDE (DILTIAZEM HYDROCHLORIDE) [Suspect]
     Indication: ILL-DEFINED DISORDER
     Dosage: 300 MG ORAL
     Route: 048
     Dates: end: 20031126

REACTIONS (4)
  - HYPERGAMMAGLOBULINAEMIA [None]
  - LEUKOCYTOCLASTIC VASCULITIS [None]
  - PURPURA [None]
  - URINARY TRACT INFECTION [None]
